FAERS Safety Report 11538922 (Version 1)
Quarter: 2015Q3

REPORT INFORMATION
  Report Type: Spontaneous
  Country: US (occurrence: None)
  Receive Date: 20150922
  Receipt Date: 20150922
  Transmission Date: 20151125
  Serious: No
  Sender: FDA-Public Use
  Company Number: None

PATIENT
  Age: 52 Year
  Sex: Female
  Weight: 132.9 kg

DRUGS (2)
  1. BYDUREON [Suspect]
     Active Substance: EXENATIDE
     Indication: OBESITY
     Dosage: 1 FULL PEN  1/WEEK GIVEN INTO/UNDER THE SKIN
     Dates: start: 20150901, end: 20150921
  2. BYDUREON [Suspect]
     Active Substance: EXENATIDE
     Indication: DIABETES MELLITUS INADEQUATE CONTROL
     Dosage: 1 FULL PEN  1/WEEK GIVEN INTO/UNDER THE SKIN
     Dates: start: 20150901, end: 20150921

REACTIONS (7)
  - Abdominal distension [None]
  - Chest pain [None]
  - Urine odour abnormal [None]
  - Chest discomfort [None]
  - Condition aggravated [None]
  - Nausea [None]
  - Flatulence [None]

NARRATIVE: CASE EVENT DATE: 20150921
